FAERS Safety Report 6239081-1 (Version None)
Quarter: 2009Q2

REPORT INFORMATION
  Report Type: 
  Country: None (occurrence: None)
  Receive Date: 20090622
  Receipt Date: 20090618
  Transmission Date: 20091009
  Serious: Yes (Death, Hospitalization, Other)
  Sender: FDA-Public Use
  Company Number: PHHY2009BR24512

PATIENT
  Sex: Female

DRUGS (4)
  1. EXELON [Suspect]
     Indication: DEMENTIA ALZHEIMER'S TYPE
     Dosage: 1.5 MG, BID
     Route: 048
     Dates: start: 20030101
  2. EXELON [Suspect]
     Dosage: 3 MG, QD
     Route: 048
  3. SOMALGIN [Concomitant]
     Dosage: ONCE DAILY
     Route: 048
  4. ATROVERAN [Concomitant]
     Indication: ABDOMINAL PAIN
     Dosage: UNK
     Route: 048

REACTIONS (5)
  - ABASIA [None]
  - ASTHENIA [None]
  - CONSTIPATION [None]
  - MALNUTRITION [None]
  - PNEUMONIA [None]
